FAERS Safety Report 25289804 (Version 1)
Quarter: 2025Q2

REPORT INFORMATION
  Report Type: Spontaneous
  Country: AR (occurrence: AR)
  Receive Date: 20250509
  Receipt Date: 20250509
  Transmission Date: 20250717
  Serious: Yes (Other)
  Sender: MERCK SHARP & DOHME LLC
  Company Number: AR-009507513-2282574

PATIENT
  Age: 55 Year
  Sex: Male

DRUGS (2)
  1. KEYTRUDA [Suspect]
     Active Substance: PEMBROLIZUMAB
  2. KEYTRUDA [Suspect]
     Active Substance: PEMBROLIZUMAB
     Dates: start: 2025

REACTIONS (4)
  - Guillain-Barre syndrome [Unknown]
  - Respiratory tract infection viral [Unknown]
  - Asthenia [Unknown]
  - Paralysis [Unknown]

NARRATIVE: CASE EVENT DATE: 20250401
